FAERS Safety Report 4785433-6 (Version None)
Quarter: 2005Q3

REPORT INFORMATION
  Report Type: 
  Country: None (occurrence: None)
  Receive Date: 20050929
  Receipt Date: 20050919
  Transmission Date: 20060218
  Serious: Yes (Hospitalization, Other)
  Sender: FDA-Public Use
  Company Number: 2005112245

PATIENT
  Sex: Male

DRUGS (1)
  1. MINIPRESS [Suspect]
     Indication: ILL-DEFINED DISORDER
     Dates: end: 20050801

REACTIONS (1)
  - DEMENTIA ALZHEIMER'S TYPE [None]
